FAERS Safety Report 7518906-3 (Version None)
Quarter: 2011Q2

REPORT INFORMATION
  Report Type: 
  Country: None (occurrence: None)
  Receive Date: 20110602
  Receipt Date: 20110523
  Transmission Date: 20111010
  Serious: Yes (Hospitalization)
  Sender: FDA-Public Use
  Company Number: JP-PFIZER INC-2011118475

PATIENT
  Age: 82 Year
  Sex: Male

DRUGS (7)
  1. ETODOLAC [Concomitant]
  2. ASPIRIN [Concomitant]
  3. NEUROTROPIN [Concomitant]
  4. MECOBALAMIN [Concomitant]
  5. MIGLITOL [Suspect]
     Indication: DIABETES MELLITUS
     Dosage: 50 MG, 3X/DAY
     Route: 048
     Dates: start: 20110419, end: 20110429
  6. REBAMIPIDE [Concomitant]
  7. AMARYL [Concomitant]

REACTIONS (2)
  - NAUSEA [None]
  - CONSTIPATION [None]
